FAERS Safety Report 6772166-X (Version None)
Quarter: 2010Q2

REPORT INFORMATION
  Report Type: 
  Country: None (occurrence: None)
  Receive Date: 20100616
  Receipt Date: 20080128
  Transmission Date: 20101027
  Serious: Yes (Congenital Anomaly)
  Sender: FDA-Public Use
  Company Number: PHHY2008DK36968

PATIENT
  Sex: Male

DRUGS (2)
  1. GLEEVEC [Suspect]
     Route: 064
  2. PEG-INTRON [Suspect]
     Route: 064

REACTIONS (4)
  - CONGENITAL BLADDER ANOMALY [None]
  - CONGENITAL HYDRONEPHROSIS [None]
  - DRUG EXPOSURE DURING PREGNANCY [None]
  - URETHRAL VALVES [None]
